FAERS Safety Report 20411185 (Version 1)
Quarter: 2022Q1

REPORT INFORMATION
  Report Type: Spontaneous
  Country: US (occurrence: None)
  Receive Date: 20220201
  Receipt Date: 20220201
  Transmission Date: 20220424
  Serious: Yes (Hospitalization)
  Sender: FDA-Public Use
  Company Number: None

PATIENT
  Age: 79 Year
  Sex: Female

DRUGS (2)
  1. HYDROCHLOROTHIAZIDE [Suspect]
     Active Substance: HYDROCHLOROTHIAZIDE
     Indication: Hypertension
     Dosage: 12,5 MG EVERY DAY PO?
     Route: 048
     Dates: start: 20210520, end: 20210611
  2. LOSARTAN [Suspect]
     Active Substance: LOSARTAN
     Dosage: 50 MG EVERY DAY PO?
     Route: 048
     Dates: start: 20210520, end: 20210611

REACTIONS (4)
  - Dizziness [None]
  - Vomiting [None]
  - Hyponatraemia [None]
  - Hypovolaemia [None]

NARRATIVE: CASE EVENT DATE: 20210611
